FAERS Safety Report 10143350 (Version 1)
Quarter: 2014Q2

REPORT INFORMATION
  Report Type: Spontaneous
  Country: US (occurrence: None)
  Receive Date: 20140429
  Receipt Date: 20140429
  Transmission Date: 20141212
  Serious: Yes (Life-Threatening, Hospitalization)
  Sender: FDA-Public Use
  Company Number: None

PATIENT
  Age: 69 Year
  Sex: Male
  Weight: 112.2 kg

DRUGS (1)
  1. ENOXAPARIN (GENERIC) [Suspect]
     Indication: ATRIAL FIBRILLATION
     Dosage: 120 MG BID SQ
     Route: 058
     Dates: start: 20140407, end: 20140410

REACTIONS (6)
  - Contusion [None]
  - Pain [None]
  - Hypotension [None]
  - Retroperitoneal haemorrhage [None]
  - Muscle haemorrhage [None]
  - Haemoglobin decreased [None]
